FAERS Safety Report 20224529 (Version 1)
Quarter: 2021Q4

REPORT INFORMATION
  Report Type: Spontaneous
  Country: US (occurrence: None)
  Receive Date: 20211223
  Receipt Date: 20211223
  Transmission Date: 20220303
  Serious: No
  Sender: FDA-Public Use
  Company Number: None

PATIENT
  Age: 27 Year
  Sex: Female
  Weight: 54.9 kg

DRUGS (1)
  1. DEFINITY [Suspect]
     Active Substance: PERFLUTREN
     Indication: Echocardiogram
     Dates: start: 20211220, end: 20211220

REACTIONS (8)
  - Infusion related reaction [None]
  - Chest discomfort [None]
  - Cough [None]
  - Dizziness [None]
  - Heart rate increased [None]
  - Dyspnoea [None]
  - Erythema [None]
  - Paraesthesia [None]

NARRATIVE: CASE EVENT DATE: 20211220
